FAERS Safety Report 9847188 (Version 1)
Quarter: 2014Q1

REPORT INFORMATION
  Report Type: Spontaneous
  Country: GB (occurrence: GB)
  Receive Date: 20140127
  Receipt Date: 20140127
  Transmission Date: 20141002
  Serious: Yes (Hospitalization)
  Sender: FDA-Public Use
  Company Number: GB-ACTAVIS-2014-00639

PATIENT
  Age: 24 Year
  Sex: Female

DRUGS (1)
  1. DOXYCYCLINE HYCLATE (UNKNOWN) [Suspect]
     Indication: MALARIA PROPHYLAXIS
     Dosage: 100 MG, DAILY
     Route: 048
     Dates: start: 20130825

REACTIONS (6)
  - Intracranial pressure increased [Unknown]
  - Headache [Unknown]
  - Visual impairment [Unknown]
  - Papilloedema [Unknown]
  - Abnormal sensation in eye [Unknown]
  - Visual impairment [Unknown]
